FAERS Safety Report 4901470-2 (Version None)
Quarter: 2006Q1

REPORT INFORMATION
  Report Type: 
  Country: None (occurrence: None)
  Receive Date: 20060202
  Receipt Date: 20060124
  Transmission Date: 20060701
  Serious: Yes (Other)
  Sender: FDA-Public Use
  Company Number: 2006-01-1701

PATIENT
  Age: 46 Year
  Sex: Female

DRUGS (2)
  1. TEMODAR [Suspect]
     Indication: GLIOBLASTOMA
     Dosage: 300 MG X5D ORAL
     Route: 048
     Dates: start: 20060119, end: 20060123
  2. TEMODAR [Suspect]
     Indication: GLIOBLASTOMA
     Dosage: 300 MG X5D ORAL
     Route: 048
     Dates: end: 20060123

REACTIONS (1)
  - MENORRHAGIA [None]
